FAERS Safety Report 5455663-9 (Version None)
Quarter: 2007Q3

REPORT INFORMATION
  Report Type: 
  Country: None (occurrence: None)
  Receive Date: 20070914
  Receipt Date: 20070830
  Transmission Date: 20080115
  Serious: Yes (Other)
  Sender: FDA-Public Use
  Company Number: 2007SP017760

PATIENT
  Age: 72 Year
  Sex: Female

DRUGS (2)
  1. MIRALAX [Suspect]
     Indication: CONSTIPATION
     Dosage: PO
     Route: 048
     Dates: start: 20070827, end: 20070828
  2. PHENERGAN EXPECTORANT W/ CODEINE [Concomitant]

REACTIONS (3)
  - GLOSSODYNIA [None]
  - LIP PAIN [None]
  - LIP SWELLING [None]
